FAERS Safety Report 7313409-3 (Version None)
Quarter: 2011Q1

REPORT INFORMATION
  Report Type: 
  Country: None (occurrence: None)
  Receive Date: 20110225
  Receipt Date: 20110216
  Transmission Date: 20110831
  Serious: No
  Sender: FDA-Public Use
  Company Number: US-PFIZER INC-2010095556

PATIENT
  Sex: Female
  Weight: 59.9 kg

DRUGS (6)
  1. LYRICA [Suspect]
     Dosage: 75 MG, 2X/DAY
     Route: 048
     Dates: start: 20110201
  2. DIAZEPAM [Concomitant]
     Indication: MUSCLE SPASMS
     Dosage: UNK
  3. OMEPRAZOLE [Concomitant]
     Indication: DIVERTICULUM
     Dosage: UNK
  4. OMEPRAZOLE [Concomitant]
     Indication: DYSPEPSIA
  5. LYRICA [Suspect]
     Indication: NEURALGIA
     Dosage: 175 MG, 3X/DAY
     Route: 048
     Dates: start: 20100727
  6. COZAAR [Concomitant]
     Indication: BLOOD PRESSURE INCREASED
     Dosage: UNK

REACTIONS (8)
  - BALANCE DISORDER [None]
  - ARTHRALGIA [None]
  - DIZZINESS [None]
  - HEADACHE [None]
  - MUSCLE SPASMS [None]
  - DRUG EFFECT DECREASED [None]
  - DIARRHOEA [None]
  - PAIN [None]
